FAERS Safety Report 19586074 (Version 1)
Quarter: 2021Q3

REPORT INFORMATION
  Report Type: Spontaneous
  Country: CH (occurrence: CH)
  Receive Date: 20210721
  Receipt Date: 20210721
  Transmission Date: 20211014
  Serious: No
  Sender: FDA-Public Use
  Company Number: CH-LUPIN PHARMACEUTICALS INC.-2021-12295

PATIENT
  Age: 74 Year
  Sex: Female

DRUGS (6)
  1. DUPILUMAB [Suspect]
     Active Substance: DUPILUMAB
     Indication: PRURITUS
     Dosage: 300 MG S.C. BIWEEKLY; BETWEEN WEEKS 22 AND 29 OF TREATMENT, DUPILUMAB WAS PAUSED; SINCE WEEK 29, THE
     Route: 058
  2. CLOBETASOL [Suspect]
     Active Substance: CLOBETASOL
     Indication: PRURITUS
  3. DUPILUMAB [Suspect]
     Active Substance: DUPILUMAB
     Indication: CUTANEOUS T-CELL LYMPHOMA STAGE IV
     Dosage: 600 MILLIGRAM
     Route: 058
  4. INTERFERON ALFA 2A [Concomitant]
     Active Substance: INTERFERON ALFA-2A
     Indication: PRURITUS
  5. CLOBETASOL [Suspect]
     Active Substance: CLOBETASOL
     Indication: CUTANEOUS T-CELL LYMPHOMA STAGE IV
     Dosage: INTERMITTENT HIGH?POTENCY TOPICAL STEROIDS WERE PRESCRIBED; THE PATIENT WAS ADVISED TO USE IT TWICE
     Route: 061
  6. INTERFERON ALFA 2A [Concomitant]
     Active Substance: INTERFERON ALFA-2A
     Indication: CUTANEOUS T-CELL LYMPHOMA STAGE IV
     Dosage: UNK
     Route: 065

REACTIONS (1)
  - Conjunctivitis [Unknown]
